FAERS Safety Report 10783874 (Version 1)
Quarter: 2015Q1

REPORT INFORMATION
  Report Type: Other
  Country: US (occurrence: US)
  Receive Date: 20150210
  Receipt Date: 20150210
  Transmission Date: 20150721
  Serious: Yes (Death)
  Sender: FDA-Public Use
  Company Number: US-FRI-1000074433

PATIENT
  Age: 45 Year
  Sex: Male

DRUGS (6)
  1. QUININE [Suspect]
     Active Substance: QUININE
  2. CITALOPRAM [Suspect]
     Active Substance: CITALOPRAM HYDROBROMIDE
  3. HEROIN [Suspect]
     Active Substance: DIACETYLMORPHINE
  4. TRAZODONE [Suspect]
     Active Substance: TRAZODONE HYDROCHLORIDE
  5. DOXEPIN [Suspect]
     Active Substance: DOXEPIN
  6. CODEINE [Suspect]
     Active Substance: CODEINE

REACTIONS (1)
  - Drug abuse [Fatal]
